FAERS Safety Report 17068068 (Version 1)
Quarter: 2019Q4

REPORT INFORMATION
  Report Type: Spontaneous
  Country: US (occurrence: US)
  Receive Date: 20191122
  Receipt Date: 20191122
  Transmission Date: 20200122
  Serious: Yes (Life-Threatening, Hospitalization, Other)
  Sender: FDA-Public Use
  Company Number: US-TEVA-2019-US-1142079

PATIENT
  Sex: Female

DRUGS (2)
  1. AMIODARONE HYDROCHLORIDE. [Suspect]
     Active Substance: AMIODARONE HYDROCHLORIDE
     Indication: ATRIAL FIBRILLATION
     Dosage: 200 MG
     Route: 048
  2. AMIODARONE HYDROCHLORIDE TEVA [Suspect]
     Active Substance: AMIODARONE HYDROCHLORIDE
     Indication: ATRIAL FIBRILLATION
     Dosage: 200 MG
     Route: 048

REACTIONS (21)
  - Dyspnoea [Unknown]
  - Heart rate increased [Unknown]
  - Fatigue [Unknown]
  - Headache [Unknown]
  - Ageusia [Unknown]
  - Toxicity to various agents [Unknown]
  - Balance disorder [Unknown]
  - Asthenia [Unknown]
  - Oedema [Unknown]
  - Disturbance in attention [Unknown]
  - Hypertension [Unknown]
  - Abnormal loss of weight [Unknown]
  - Skin lesion [Unknown]
  - Off label use [Unknown]
  - Lung disorder [Unknown]
  - Haemorrhage [Unknown]
  - Contusion [Unknown]
  - Amnesia [Unknown]
  - Hepatotoxicity [Unknown]
  - Depression [Unknown]
  - Lung infiltration [Unknown]

NARRATIVE: CASE EVENT DATE: 201505
